FAERS Safety Report 6294533-3 (Version None)
Quarter: 2009Q3

REPORT INFORMATION
  Report Type: 
  Country: None (occurrence: None)
  Receive Date: 20090803
  Receipt Date: 20090727
  Transmission Date: 20100115
  Serious: Yes (Death, Hospitalization)
  Sender: FDA-Public Use
  Company Number: BE-AMGEN-UK340798

PATIENT
  Sex: Female

DRUGS (6)
  1. ROMIPLOSTIM [Suspect]
     Indication: IDIOPATHIC THROMBOCYTOPENIC PURPURA
     Route: 058
     Dates: start: 20070614, end: 20090326
  2. FOSAMAX [Concomitant]
     Route: 048
     Dates: start: 20061101
  3. RANITIDINE [Concomitant]
     Route: 048
     Dates: start: 20010101
  4. DAFALGAN [Concomitant]
     Route: 048
     Dates: start: 20080101
  5. ELOCON [Concomitant]
     Route: 061
     Dates: start: 20080101
  6. LIPITOR [Concomitant]

REACTIONS (1)
  - ANGINA UNSTABLE [None]
